APPROVED DRUG PRODUCT: METHYLPREDNISOLONE SODIUM SUCCINATE
Active Ingredient: METHYLPREDNISOLONE SODIUM SUCCINATE
Strength: EQ 500MG BASE/VIAL
Dosage Form/Route: INJECTABLE;INJECTION
Application: A089187 | Product #001
Applicant: ABRAXIS PHARMACEUTICAL PRODUCTS
Approved: Mar 28, 1986 | RLD: No | RS: No | Type: DISCN